FAERS Safety Report 7010081-7 (Version None)
Quarter: 2010Q3

REPORT INFORMATION
  Report Type: 
  Country: None (occurrence: None)
  Receive Date: 20100909
  Receipt Date: 20090728
  Transmission Date: 20110219
  Serious: Yes (Hospitalization)
  Sender: FDA-Public Use
  Company Number: 2009247183

PATIENT
  Age: 50 Year
  Sex: Male

DRUGS (4)
  1. LOPID [Suspect]
     Dosage: 600 MG, 2X/DAY
  2. FENOFIBRIC ACID [Suspect]
     Dosage: 135 MG
  3. DILANTIN [Concomitant]
  4. PHENOBARBITAL TAB [Concomitant]

REACTIONS (1)
  - RHABDOMYOLYSIS [None]
